FAERS Safety Report 4825978-3 (Version None)
Quarter: 2005Q4

REPORT INFORMATION
  Report Type: 
  Country: None (occurrence: None)
  Receive Date: 20051109
  Receipt Date: 20051026
  Transmission Date: 20060501
  Serious: Yes (Death, Hospitalization, Other)
  Sender: FDA-Public Use
  Company Number: US-2005-014171

PATIENT
  Age: 47 Year
  Sex: Female

DRUGS (1)
  1. BETASERON [Suspect]
     Indication: MULTIPLE SCLEROSIS
     Dosage: SUBCUTANEOUS
     Route: 058
     Dates: start: 19940310, end: 20041204

REACTIONS (11)
  - ANAEMIA [None]
  - BLOOD GLUCOSE INCREASED [None]
  - CHOKING [None]
  - CONVULSION [None]
  - DIABETES MELLITUS [None]
  - DISEASE PROGRESSION [None]
  - DISEASE RECURRENCE [None]
  - HAEMORRHAGE [None]
  - MULTIPLE SCLEROSIS [None]
  - PNEUMONIA ASPIRATION [None]
  - URINARY TRACT INFECTION [None]
